FAERS Safety Report 15343706 (Version 2)
Quarter: 2018Q3

REPORT INFORMATION
  Report Type: Report from Study
  Country: BR (occurrence: BR)
  Receive Date: 20180903
  Receipt Date: 20180928
  Transmission Date: 20181010
  Serious: Yes (Hospitalization)
  Sender: FDA-Public Use
  Company Number: BR-EMD SERONO-E2B_90056957

PATIENT
  Sex: Female

DRUGS (1)
  1. REBIF [Suspect]
     Active Substance: INTERFERON BETA-1A
     Indication: MULTIPLE SCLEROSIS
     Route: 058
     Dates: start: 201806, end: 20180817

REACTIONS (2)
  - Uterine haemorrhage [Not Recovered/Not Resolved]
  - Hormone level abnormal [Unknown]

NARRATIVE: CASE EVENT DATE: 2018
